FAERS Safety Report 22276733 (Version 2)
Quarter: 2024Q2

REPORT INFORMATION
  Report Type: Other
  Country: DE (occurrence: None)
  Receive Date: 20230503
  Receipt Date: 20240610
  Transmission Date: 20240716
  Serious: No
  Sender: FDA-Public Use
  Company Number: DE-ROCHE-3338162

PATIENT
  Age: 66 Year
  Sex: Female
  Weight: 65 kg

DRUGS (2)
  1. ATEZOLIZUMAB [Suspect]
     Active Substance: ATEZOLIZUMAB
     Indication: Breast cancer
     Dosage: 28/NOV/2022: SHE RECEIVED LAST DOSE OF ATEZOLIZUMAB PRIOR TO EVENT.
     Route: 041
     Dates: start: 20211227
  2. PACLITAXEL [Suspect]
     Active Substance: PACLITAXEL
     Indication: Breast cancer
     Dosage: 30/MAY/2022: SHE RECEIVED LAST DOSE OF PACLITAXEL NANOPARTICLE ALBUMIN-BOUND PRIOR TO EVENT AT 171 M
     Route: 065
     Dates: start: 20211227

REACTIONS (2)
  - Psoriatic arthropathy [Not Recovered/Not Resolved]
  - Psoriasis [Not Recovered/Not Resolved]

NARRATIVE: CASE EVENT DATE: 20221201
